FAERS Safety Report 8219682-1 (Version None)
Quarter: 2012Q1

REPORT INFORMATION
  Report Type: 
  Country: None (occurrence: None)
  Receive Date: 20120319
  Receipt Date: 20120308
  Transmission Date: 20120608
  Serious: Yes (Death, Hospitalization, Other)
  Sender: FDA-Public Use
  Company Number: GB-ROCHE-1047634

PATIENT
  Sex: Female

DRUGS (5)
  1. LUCENTIS [Suspect]
     Indication: PRODUCT USED FOR UNKNOWN INDICATION
     Route: 050
     Dates: start: 20110101, end: 20110601
  2. SIMVASTATIN [Concomitant]
  3. BENDROFLUMETHIAZIDE [Concomitant]
  4. CLOPIDOGREL [Concomitant]
  5. LISINOPRIL [Concomitant]

REACTIONS (13)
  - MITRAL VALVE INCOMPETENCE [None]
  - CLAVICLE FRACTURE [None]
  - RIB FRACTURE [None]
  - CEREBROVASCULAR ACCIDENT [None]
  - TRICUSPID VALVE INCOMPETENCE [None]
  - SUBDURAL HAEMORRHAGE [None]
  - CORNEAL OPACITY [None]
  - CARDIAC FAILURE [None]
  - HYPERTENSIVE HEART DISEASE [None]
  - SUBARACHNOID HAEMORRHAGE [None]
  - LOSS OF CONSCIOUSNESS [None]
  - MACULAR PIGMENTATION [None]
  - PNEUMONIA [None]
